FAERS Safety Report 23179958 (Version 2)
Quarter: 2023Q4

REPORT INFORMATION
  Report Type: Spontaneous
  Country: BR (occurrence: None)
  Receive Date: 20231114
  Receipt Date: 20231201
  Transmission Date: 20240110
  Serious: Yes (Other)
  Sender: FDA-Public Use
  Company Number: BR-ROCHE-3454867

PATIENT
  Age: 63 Year
  Sex: Female
  Weight: 44.5 kg

DRUGS (7)
  1. HERCEPTIN [Suspect]
     Active Substance: TRASTUZUMAB
     Indication: Breast cancer
     Dosage: ON 16/OCT/2023, MOST RECENT INFUSION WAS PERFORMED
     Route: 041
     Dates: start: 20230911
  2. HERCEPTIN [Suspect]
     Active Substance: TRASTUZUMAB
     Indication: Pancreatic carcinoma
  3. PACLITAXEL [Suspect]
     Active Substance: PACLITAXEL
     Indication: Breast cancer
     Route: 042
     Dates: start: 20230911, end: 20231016
  4. PACLITAXEL [Suspect]
     Active Substance: PACLITAXEL
     Indication: Pancreatic carcinoma
  5. AMLODIPINE BESYLATE\PERINDOPRIL ARGININE [Concomitant]
     Active Substance: AMLODIPINE BESYLATE\PERINDOPRIL ARGININE
     Dosage: 3.5 MG + 2.5 MG
  6. ROSUVASTATIN CALCIUM [Concomitant]
     Active Substance: ROSUVASTATIN CALCIUM
  7. OMEPRAZOLE [Concomitant]
     Active Substance: OMEPRAZOLE

REACTIONS (1)
  - Phlebitis [Recovered/Resolved]

NARRATIVE: CASE EVENT DATE: 20230915
